FAERS Safety Report 5300369-X (Version None)
Quarter: 2007Q2

REPORT INFORMATION
  Report Type: 
  Country: None (occurrence: None)
  Receive Date: 20070411
  Receipt Date: 20070307
  Transmission Date: 20071010
  Serious: Yes (Other)
  Sender: FDA-Public Use
  Company Number: 16206

PATIENT
  Age: 27 Year
  Sex: Male

DRUGS (1)
  1. PARVOLEX. MFR:  MAYNE [Suspect]
     Indication: DRUG TOXICITY
     Dosage: 9 G ONCE INJ
     Dates: start: 20061101

REACTIONS (1)
  - ANAPHYLACTIC REACTION [None]
